FAERS Safety Report 17865534 (Version 1)
Quarter: 2020Q2

REPORT INFORMATION
  Report Type: Spontaneous
  Country: US (occurrence: US)
  Receive Date: 20200604
  Receipt Date: 20200604
  Transmission Date: 20200714
  Serious: No
  Sender: FDA-Public Use
  Company Number: None

PATIENT
  Sex: Male

DRUGS (1)
  1. HUMIRA [Suspect]
     Active Substance: ADALIMUMAB
     Indication: IDIOPATHIC URTICARIA
     Dosage: 40MG/0.4ML EVERY 2 WEEKS SQ
     Route: 058
     Dates: start: 20191111

REACTIONS (3)
  - Epistaxis [None]
  - Nasal ulcer [None]
  - Conjunctival haemorrhage [None]
